FAERS Safety Report 10217008 (Version 1)
Quarter: 2014Q2

REPORT INFORMATION
  Report Type: Spontaneous
  Country: BR (occurrence: BR)
  Receive Date: 20140604
  Receipt Date: 20140604
  Transmission Date: 20141212
  Serious: Yes (Hospitalization)
  Sender: FDA-Public Use
  Company Number: BR-AMGEN-BRASP2014041352

PATIENT
  Age: 75 Year
  Sex: Female

DRUGS (10)
  1. NEULASTIM [Suspect]
     Indication: PRODUCT USED FOR UNKNOWN INDICATION
     Dosage: 6 MG, UNK (SECOND CYCLE WAS RECEIVED ON 26-FEB-2014)
     Route: 058
     Dates: start: 20140203
  2. SIMVASTATIN [Concomitant]
     Dosage: 10 MG,1 IN 1 D (HALF TABLET ADMINISTERED ONCE A DAY)
  3. FARMORUBICIN [Concomitant]
     Dosage: 158.04 MG, UNK
     Route: 042
     Dates: start: 20140106
  4. FAULDFLUOR [Concomitant]
     Dosage: 1053.6 MG, UNK
     Route: 042
     Dates: start: 20140106
  5. GENUXAL [Concomitant]
     Dosage: 1053.6 MG, UNK
     Route: 042
     Dates: start: 20140106
  6. DIOVAN AMLO [Concomitant]
     Dosage: 160/5 MG, (1 IN 1 D)
  7. ABLOK PLUS [Concomitant]
     Dosage: 50/12.5 MG (1 IN 1 D)
  8. METFORMIN [Concomitant]
     Dosage: 500 MG, (1 IN 1 D)
  9. ASPIRIN [Concomitant]
     Dosage: UNK UNK, (1 IN 1 D)
  10. PACLITAXEL [Concomitant]
     Dosage: UNK
     Dates: start: 20140106

REACTIONS (2)
  - Neutropenia [Recovered/Resolved]
  - Pyrexia [Recovered/Resolved]
